FAERS Safety Report 11103401 (Version 1)
Quarter: 2015Q2

REPORT INFORMATION
  Report Type: Spontaneous
  Country: JP (occurrence: JP)
  Receive Date: 20150511
  Receipt Date: 20150511
  Transmission Date: 20150821
  Serious: Yes (Death)
  Sender: FDA-Public Use
  Company Number: JP-ACTELION-A-CH2015-117352

PATIENT
  Sex: Male

DRUGS (3)
  1. VELETRI [Suspect]
     Active Substance: EPOPROSTENOL
     Indication: PULMONARY HYPERTENSION
     Dosage: 80 NG/KG, PER MIN
     Route: 042
     Dates: start: 20141201, end: 20150424
  2. NITRIC OXIDE. [Concomitant]
     Active Substance: NITRIC OXIDE
  3. OXYGEN. [Concomitant]
     Active Substance: OXYGEN

REACTIONS (2)
  - Condition aggravated [Fatal]
  - Bronchopulmonary dysplasia [Fatal]

NARRATIVE: CASE EVENT DATE: 20150424
